FAERS Safety Report 8177148-1 (Version None)
Quarter: 2012Q1

REPORT INFORMATION
  Report Type: 
  Country: None (occurrence: None)
  Receive Date: 20120301
  Receipt Date: 20120220
  Transmission Date: 20120608
  Serious: Yes (Hospitalization)
  Sender: FDA-Public Use
  Company Number: FR-GLAXOSMITHKLINE-B0782657A

PATIENT
  Sex: Female

DRUGS (10)
  1. PANTOPRAZOLE [Concomitant]
  2. VITAMIN A [Concomitant]
     Route: 047
  3. PREDNISOLONE [Concomitant]
  4. TARCEVA [Concomitant]
  5. DACRYOSERUM [Concomitant]
  6. TARCEVA [Concomitant]
  7. TRAMADOL HCL [Concomitant]
     Route: 050
  8. ARIXTRA [Suspect]
     Indication: PULMONARY EMBOLISM
     Dosage: 7.5MG PER DAY
     Route: 058
     Dates: start: 20090901, end: 20100923
  9. GAVISCON [Concomitant]
  10. CYTARABINE [Concomitant]

REACTIONS (2)
  - INCORRECT DRUG ADMINISTRATION DURATION [None]
  - RETROPERITONEAL HAEMATOMA [None]
